FAERS Safety Report 5651830-X (Version None)
Quarter: 2008Q1

REPORT INFORMATION
  Report Type: 
  Country: None (occurrence: None)
  Receive Date: 20080305
  Receipt Date: 20080225
  Transmission Date: 20080703
  Serious: Yes (Other)
  Sender: FDA-Public Use
  Company Number: US-PFIZER INC-2007064879

PATIENT
  Sex: Female

DRUGS (2)
  1. DEPO-MEDROL [Suspect]
  2. LIDOCAINE [Suspect]

REACTIONS (6)
  - AGITATION [None]
  - BURNING SENSATION [None]
  - FEELING JITTERY [None]
  - HYPOAESTHESIA [None]
  - MUSCULAR WEAKNESS [None]
  - MYALGIA [None]
